FAERS Safety Report 7803394-X (Version None)
Quarter: 2011Q4

REPORT INFORMATION
  Report Type: 
  Country: None (occurrence: None)
  Receive Date: 20111007
  Receipt Date: 20111003
  Transmission Date: 20120403
  Serious: Yes (Other)
  Sender: FDA-Public Use
  Company Number: CZ-ABBOTT-11P-217-0861029-00

PATIENT
  Sex: Male

DRUGS (1)
  1. CLARITHROMYCIN [Suspect]
     Indication: CHLAMYDIAL INFECTION

REACTIONS (1)
  - LIVER FUNCTION TEST ABNORMAL [None]
